FAERS Safety Report 8809769 (Version 1)
Quarter: 2012Q4

REPORT INFORMATION
  Report Type: 
  Country: DE (occurrence: DE)
  Receive Date: 20120926
  Receipt Date: 20120926
  Transmission Date: 20130627
  Serious: Yes (Other)
  Sender: FDA-Public Use
  Company Number: CHPA2012DE020419

PATIENT
  Sex: Female

DRUGS (2)
  1. NICOTINELL TTS 10 [Suspect]
     Indication: SMOKING CESSATION THERAPY
     Dosage: 17.5 mg, QD
     Route: 062
     Dates: start: 20120909, end: 20120911
  2. TOLPERISONE HYDROCHLORIDE [Concomitant]

REACTIONS (4)
  - Hemiparesis [Recovered/Resolved]
  - Paraesthesia [Recovered/Resolved]
  - Gait disturbance [None]
  - Product adhesion issue [None]
